FAERS Safety Report 12650326 (Version 1)
Quarter: 2016Q3

REPORT INFORMATION
  Report Type: Spontaneous
  Country: US (occurrence: US)
  Receive Date: 20160814
  Receipt Date: 20160814
  Transmission Date: 20161109
  Serious: No
  Sender: FDA-Public Use
  Company Number: US-TEVA-681648ACC

PATIENT
  Age: 17 Year
  Sex: Female
  Weight: 83.99 kg

DRUGS (2)
  1. SULSANETHOXAZOLE [Concomitant]
     Indication: ACNE
     Dates: start: 20160630
  2. PLAN B ONE-STEP [Suspect]
     Active Substance: LEVONORGESTREL
     Indication: POST COITAL CONTRACEPTION
     Dates: start: 20160621, end: 20160621

REACTIONS (1)
  - Menstruation delayed [Recovered/Resolved]

NARRATIVE: CASE EVENT DATE: 20160625
